FAERS Safety Report 25602655 (Version 1)
Quarter: 2025Q3

REPORT INFORMATION
  Report Type: Report from Study
  Country: BR (occurrence: BR)
  Receive Date: 20250724
  Receipt Date: 20250724
  Transmission Date: 20251020
  Serious: Yes (Hospitalization, Other)
  Sender: TAKEDA
  Company Number: BR-TAKEDA-2024TUS088045

PATIENT
  Age: 75 Year
  Sex: Female

DRUGS (1)
  1. VEDOLIZUMAB [Suspect]
     Active Substance: VEDOLIZUMAB
     Indication: Crohn^s disease
     Dosage: 300 MILLIGRAM, Q4WEEKS
     Dates: start: 20231023

REACTIONS (5)
  - Diabetes mellitus [Unknown]
  - Emphysema [Recovered/Resolved]
  - Malaise [Unknown]
  - Diarrhoea [Unknown]
  - Hypoglycaemia [Unknown]

NARRATIVE: CASE EVENT DATE: 20250501
